FAERS Safety Report 5449313-5 (Version None)
Quarter: 2007Q3

REPORT INFORMATION
  Report Type: 
  Country: None (occurrence: None)
  Receive Date: 20070911
  Receipt Date: 20070830
  Transmission Date: 20080115
  Serious: Yes (Other)
  Sender: FDA-Public Use
  Company Number: US-PFIZER INC-2007037393

PATIENT
  Sex: Male
  Weight: 147 kg

DRUGS (2)
  1. SUTENT [Suspect]
     Indication: RENAL CANCER METASTATIC
     Dosage: DAILY DOSE:50MG-FREQ:DAILY:EVERY DAY
     Route: 048
     Dates: start: 20041014, end: 20070722
  2. SUTENT [Suspect]
     Dosage: DAILY DOSE:50MG
     Route: 048

REACTIONS (4)
  - IMPAIRED HEALING [None]
  - OPEN WOUND [None]
  - SKIN GRAFT [None]
  - SKIN ULCER [None]
